FAERS Safety Report 23204608 (Version 1)
Quarter: 2023Q4

REPORT INFORMATION
  Report Type: Report from Study
  Country: TW (occurrence: TW)
  Receive Date: 20231120
  Receipt Date: 20231120
  Transmission Date: 20240110
  Serious: Yes (Death, Hospitalization, Other)
  Sender: FDA-Public Use
  Company Number: TW-ALXN-A202111720

PATIENT
  Age: 38 Year
  Sex: Female
  Weight: 47 kg

DRUGS (5)
  1. SOLIRIS [Suspect]
     Active Substance: ECULIZUMAB
     Indication: Atypical haemolytic uraemic syndrome
     Dosage: UNK
     Route: 042
     Dates: start: 20210727, end: 20210727
  2. SOLIRIS [Suspect]
     Active Substance: ECULIZUMAB
     Dosage: UNK
     Route: 042
     Dates: start: 20210809, end: 20210809
  3. PREDNISOLONE [Concomitant]
     Active Substance: PREDNISOLONE
     Indication: Encapsulating peritoneal sclerosis
     Dosage: 10 MG, BID
     Route: 048
     Dates: start: 20210127
  4. TAMOXIFEN                          /00388702/ [Concomitant]
     Indication: Encapsulating peritoneal sclerosis
     Dosage: 10 MG, BID
     Route: 048
     Dates: start: 20210127, end: 20210726
  5. Covid-19 Vaccine [Concomitant]
     Indication: COVID-19 immunisation
     Dosage: UNK
     Route: 065

REACTIONS (4)
  - Asthenia [Fatal]
  - Septic shock [Fatal]
  - Acute pulmonary oedema [Recovered/Resolved]
  - Ileus [Recovered/Resolved]

NARRATIVE: CASE EVENT DATE: 20210114
